FAERS Safety Report 4901764-0 (Version None)
Quarter: 2006Q1

REPORT INFORMATION
  Report Type: 
  Country: None (occurrence: None)
  Receive Date: 20060201
  Receipt Date: 20060201
  Transmission Date: 20060701
  Serious: Yes (Other)
  Sender: FDA-Public Use
  Company Number: None

PATIENT
  Sex: Male
  Weight: 82.5547 kg

DRUGS (7)
  1. ZETIA [Suspect]
     Indication: HYPERLIPIDAEMIA
     Dosage: 10MG PO DAILY
     Route: 048
     Dates: start: 20050714, end: 20050803
  2. FOLIC ACID [Concomitant]
  3. FELODIPINE [Concomitant]
  4. TEMAZEPAM [Concomitant]
  5. ASPIRIN [Concomitant]
  6. HYDROCHLOROTHIAZIDE [Concomitant]
  7. OFLOXACIN [Concomitant]

REACTIONS (1)
  - RASH [None]
